FAERS Safety Report 18806845 (Version 1)
Quarter: 2021Q1

REPORT INFORMATION
  Report Type: Spontaneous
  Country: US (occurrence: US)
  Receive Date: 20210128
  Receipt Date: 20210128
  Transmission Date: 20210419
  Serious: Yes (Life-Threatening)
  Sender: FDA-Public Use
  Company Number: None

PATIENT
  Age: 71 Year
  Sex: Male
  Weight: 76 kg

DRUGS (2)
  1. ROPINIROLE (ROPINIROLE HCL 0.5MG TAB) [Suspect]
     Active Substance: ROPINIROLE HYDROCHLORIDE
     Indication: TREMOR
     Route: 048
     Dates: start: 20201027, end: 20201030
  2. ROPINIROLE (ROPINIROLE HCL 0.5MG TAB) [Suspect]
     Active Substance: ROPINIROLE HYDROCHLORIDE
     Indication: RESTLESS LEGS SYNDROME
     Route: 048
     Dates: start: 20201027, end: 20201030

REACTIONS (4)
  - Respiratory depression [None]
  - Respiratory arrest [None]
  - Sedation complication [None]
  - Cardio-respiratory arrest [None]

NARRATIVE: CASE EVENT DATE: 20201030
